FAERS Safety Report 7427705-2 (Version None)
Quarter: 2011Q2

REPORT INFORMATION
  Report Type: 
  Country: None (occurrence: None)
  Receive Date: 20110421
  Receipt Date: 20110413
  Transmission Date: 20111010
  Serious: Yes (Other)
  Sender: FDA-Public Use
  Company Number: US-ASTRAZENECA-2009UW11842

PATIENT
  Age: 28 Year
  Sex: Female

DRUGS (4)
  1. SEROQUEL [Suspect]
     Dosage: 50-100 MG
     Route: 048
     Dates: start: 20080519
  2. SEROQUEL [Suspect]
     Indication: DEPRESSION
     Route: 048
     Dates: start: 20060101, end: 20080101
  3. SEROQUEL [Suspect]
     Dosage: 50-100 MG
     Route: 048
     Dates: start: 20080519
  4. SEROQUEL [Suspect]
     Indication: INSOMNIA
     Route: 048
     Dates: start: 20060101, end: 20080101

REACTIONS (3)
  - TYPE 1 DIABETES MELLITUS [None]
  - NEUROPATHY PERIPHERAL [None]
  - DIABETES MELLITUS [None]
